APPROVED DRUG PRODUCT: PHEXXI
Active Ingredient: CITRIC ACID; LACTIC ACID; POTASSIUM BITARTRATE
Strength: 1%;1.8%;0.4%
Dosage Form/Route: GEL;VAGINAL
Application: N208352 | Product #001
Applicant: EVOFEM INC
Approved: May 22, 2020 | RLD: Yes | RS: Yes | Type: RX

PATENTS:
Patent 11337989 | Expires: Mar 15, 2033
Patent 11992472 | Expires: Mar 15, 2033
Patent 10568855 | Expires: Mar 15, 2033
Patent 11439610 | Expires: Mar 15, 2033